FAERS Safety Report 8359669-1 (Version None)
Quarter: 2012Q2

REPORT INFORMATION
  Report Type: 
  Country: None (occurrence: None)
  Receive Date: 20120515
  Receipt Date: 20120511
  Transmission Date: 20120825
  Serious: Yes (Hospitalization, Other)
  Sender: FDA-Public Use
  Company Number: US-PFIZER INC-2012066624

PATIENT
  Sex: Female
  Weight: 113 kg

DRUGS (6)
  1. LYRICA [Suspect]
     Indication: DIABETIC NEUROPATHY
     Dosage: 100 MG, DAILY
     Route: 048
     Dates: start: 20120201
  2. AMITRIPTYLINE HCL [Suspect]
     Indication: NEUROPATHY PERIPHERAL
  3. WARFARIN SODIUM [Suspect]
     Dosage: UNK
     Route: 042
     Dates: start: 20120301
  4. LYRICA [Suspect]
     Indication: NEUROPATHY PERIPHERAL
     Dosage: 100 MG, 2X/DAY
     Route: 048
     Dates: start: 20120301
  5. AMITRIPTYLINE HCL [Suspect]
     Indication: PAIN
     Dosage: 100 MG, DAILY AT NIGHT
     Dates: start: 20120301
  6. IRON [Suspect]
     Indication: IRON DEFICIENCY
     Dosage: UNK
     Route: 042
     Dates: start: 20120301

REACTIONS (8)
  - DRUG INEFFECTIVE [None]
  - PHLEBITIS [None]
  - PAIN [None]
  - SLEEP DISORDER [None]
  - ABSCESS [None]
  - CEREBROVASCULAR ACCIDENT [None]
  - ATRIAL FIBRILLATION [None]
  - CARDIAC DISORDER [None]
